FAERS Safety Report 23837111 (Version 1)
Quarter: 2024Q2

REPORT INFORMATION
  Report Type: Spontaneous
  Country: PT (occurrence: PT)
  Receive Date: 20240509
  Receipt Date: 20240509
  Transmission Date: 20240716
  Serious: Yes (Life-Threatening)
  Sender: FDA-Public Use
  Company Number: None

PATIENT
  Age: 52 Year
  Sex: Male

DRUGS (5)
  1. ROCURONIUM BROMIDE [Suspect]
     Active Substance: ROCURONIUM BROMIDE
     Indication: Product used for unknown indication
     Dosage: FORM OF ADMIN: SOLUTION FOR INJECTION OR INFUSION
     Route: 042
     Dates: start: 20240418, end: 20240418
  2. PROPOFOL [Suspect]
     Active Substance: PROPOFOL
     Indication: Product used for unknown indication
     Dosage: FOA - EMULSION FOR INJECTION OR INFUSION
     Route: 042
     Dates: start: 20240418, end: 20240418
  3. HYDROCORTISONE [Suspect]
     Active Substance: HYDROCORTISONE
     Indication: Product used for unknown indication
     Dosage: FOA - POWDER AND SOLVENT FOR SOLUTION FOR INJECTION OR INFUSION
     Route: 042
     Dates: start: 20240418, end: 20240418
  4. LIDOCAINE HYDROCHLORIDE [Suspect]
     Active Substance: LIDOCAINE HYDROCHLORIDE
     Indication: Product used for unknown indication
     Dosage: FOA - SOLUTION FOR INJECTION
     Route: 042
     Dates: start: 20240418, end: 20240418
  5. FENTANYL CITRATE [Suspect]
     Active Substance: FENTANYL CITRATE
     Indication: Product used for unknown indication
     Dosage: FOA - SOLUTION FOR INJECTION
     Route: 042
     Dates: start: 20240418, end: 20240418

REACTIONS (1)
  - Anaphylactic reaction [Recovering/Resolving]

NARRATIVE: CASE EVENT DATE: 20240418
